FAERS Safety Report 5014173-3 (Version None)
Quarter: 2006Q2

REPORT INFORMATION
  Report Type: 
  Country: None (occurrence: None)
  Receive Date: 20060414
  Receipt Date: 20060214
  Transmission Date: 20061013
  Serious: No
  Sender: FDA-Public Use
  Company Number: 2006SP000773

PATIENT
  Age: 76 Year
  Sex: Male
  Weight: 64.4108 kg

DRUGS (7)
  1. LUNESTA [Suspect]
     Indication: INSOMNIA
     Dosage: SEE IMAGE
     Route: 048
     Dates: start: 20060101, end: 20060101
  2. LUNESTA [Suspect]
     Indication: INSOMNIA
     Dosage: SEE IMAGE
     Route: 048
     Dates: start: 20060213
  3. CLONAZEPAM [Concomitant]
  4. CARBAMAZEPINE [Concomitant]
  5. LISINOPRIL [Concomitant]
  6. NIACIN [Concomitant]
  7. EXCEDRIN (MIGRAINE) [Concomitant]

REACTIONS (5)
  - CHEST PAIN [None]
  - DRUG INEFFECTIVE [None]
  - DYSPNOEA [None]
  - INITIAL INSOMNIA [None]
  - SOMNOLENCE [None]
